FAERS Safety Report 24033718 (Version 1)
Quarter: 2024Q3

REPORT INFORMATION
  Report Type: Report from Study
  Country: US (occurrence: US)
  Receive Date: 20240701
  Receipt Date: 20240701
  Transmission Date: 20241016
  Serious: No
  Sender: ROCHE
  Company Number: US-ROCHE-3487644

PATIENT
  Age: 1 Year
  Sex: Male
  Weight: 7.79 kg

DRUGS (4)
  1. EVRYSDI [Suspect]
     Active Substance: RISDIPLAM
     Indication: Spinal muscular atrophy
     Dosage: ROUTE: FEEDING TUBE, EXPECTED TREATMENT START DATE: 26/SEP/2022
     Route: 050
  2. EVRYSDI [Suspect]
     Active Substance: RISDIPLAM
     Dosage: TAKE 2.7ML (2MG) BY MOUTH EVERY DAY
     Route: 048
  3. EVRYSDI [Suspect]
     Active Substance: RISDIPLAM
     Dosage: STRENGTH: 0.75 MG/ML
     Route: 048
     Dates: start: 20220923
  4. ZOLGENSMA [Concomitant]
     Active Substance: ONASEMNOGENE ABEPARVOVEC-XIOI

REACTIONS (3)
  - Nasopharyngitis [Not Recovered/Not Resolved]
  - Ear infection [Not Recovered/Not Resolved]
  - Nasopharyngitis [Not Recovered/Not Resolved]

NARRATIVE: CASE EVENT DATE: 20231225
